FAERS Safety Report 5080081-5 (Version None)
Quarter: 2006Q3

REPORT INFORMATION
  Report Type: 
  Country: None (occurrence: None)
  Receive Date: 20060810
  Receipt Date: 20060731
  Transmission Date: 20061208
  Serious: Yes (Other)
  Sender: FDA-Public Use
  Company Number: 2006062853

PATIENT
  Age: 52 Year
  Sex: Male
  Weight: 96.1626 kg

DRUGS (5)
  1. ZOLOFT [Suspect]
     Indication: ANXIETY
     Dosage: 12.5 MG (12.5 MG, 1 IN 1 D),
     Dates: start: 20060508
  2. ZOLOFT [Suspect]
     Indication: OBSESSIVE-COMPULSIVE DISORDER
     Dosage: 12.5 MG (12.5 MG, 1 IN 1 D),
     Dates: start: 20060508
  3. TRAZODONE HCL [Suspect]
     Indication: SLEEP DISORDER
     Dates: start: 20060508
  4. MINOXIDIL [Suspect]
     Indication: ALOPECIA
     Dosage: TOPICAL
     Route: 061
     Dates: start: 20060227, end: 20060501
  5. CLONAZEPAM [Concomitant]

REACTIONS (6)
  - CONDITION AGGRAVATED [None]
  - DEAFNESS [None]
  - DRUG INEFFECTIVE [None]
  - DRUG INTOLERANCE [None]
  - PANIC ATTACK [None]
  - TINNITUS [None]
